FAERS Safety Report 5738785-4 (Version None)
Quarter: 2008Q2

REPORT INFORMATION
  Report Type: 
  Country: None (occurrence: None)
  Receive Date: 20080515
  Receipt Date: 20080228
  Transmission Date: 20081010
  Serious: Yes (Hospitalization)
  Sender: FDA-Public Use
  Company Number: A0712450A

PATIENT
  Age: 77 Year
  Sex: Female

DRUGS (5)
  1. VERAMYST [Suspect]
     Route: 045
     Dates: start: 20070601, end: 20070701
  2. COUMADIN [Concomitant]
  3. TRIAMTERENE AND HYDROCHLOROTHIAZIDE [Concomitant]
  4. DIGOXIN [Concomitant]
  5. LIPITOR [Concomitant]

REACTIONS (1)
  - CATARACT [None]
